FAERS Safety Report 4428843-9 (Version None)
Quarter: 2004Q3

REPORT INFORMATION
  Report Type: 
  Country: None (occurrence: None)
  Receive Date: 20040816
  Receipt Date: 20040809
  Transmission Date: 20050211
  Serious: No
  Sender: FDA-Public Use
  Company Number: 2004226288US

PATIENT
  Age: 62 Year
  Sex: Female

DRUGS (2)
  1. PROVERA [Suspect]
     Dates: start: 19911113, end: 20000701
  2. PREMARIN [Suspect]
     Dates: start: 19911113, end: 20000701

REACTIONS (1)
  - BREAST CANCER FEMALE [None]
